FAERS Safety Report 9033694 (Version 1)
Quarter: 2013Q1

REPORT INFORMATION
  Report Type: Spontaneous
  Country: US (occurrence: US)
  Receive Date: 20130128
  Receipt Date: 20130128
  Transmission Date: 20140127
  Serious: Yes (Other)
  Sender: FDA-Public Use
  Company Number: US-AMGEN-USASP2012078479

PATIENT
  Age: 15 Year
  Sex: Male

DRUGS (1)
  1. ENBREL [Suspect]
     Indication: PRODUCT USED FOR UNKNOWN INDICATION
     Dosage: UNK
     Dates: start: 20120703

REACTIONS (4)
  - Paediatric autoimmune neuropsychiatric disorders associated with streptococcal infection [Unknown]
  - Convulsion [Unknown]
  - Arthritis [Unknown]
  - Coagulopathy [Unknown]
